FAERS Safety Report 8859854 (Version 1)
Quarter: 2012Q4

REPORT INFORMATION
  Report Type: Report from Study
  Country: US (occurrence: US)
  Receive Date: 20121025
  Receipt Date: 20121025
  Transmission Date: 20130627
  Serious: No
  Sender: FDA-Public Use
  Company Number: US-ABBOTT-11P-163-0873543-00

PATIENT
  Age: 26 Year
  Sex: Female
  Weight: 56.75 kg

DRUGS (4)
  1. LUPRON DEPOT 3.75 MG [Suspect]
     Indication: ENDOMETRIOSIS
     Dates: start: 20111026
  2. KEPPRA [Concomitant]
     Indication: CONVULSION
  3. FLEXERIL [Concomitant]
     Indication: FIBROMYALGIA
  4. FENTANYL [Concomitant]
     Indication: MIGRAINE

REACTIONS (2)
  - Dizziness [Not Recovered/Not Resolved]
  - Emotional distress [Not Recovered/Not Resolved]
